FAERS Safety Report 11467587 (Version 1)
Quarter: 2015Q3

REPORT INFORMATION
  Report Type: Report from Study
  Country: VE (occurrence: VE)
  Receive Date: 20150908
  Receipt Date: 20150908
  Transmission Date: 20151125
  Serious: Yes (Death)
  Sender: FDA-Public Use
  Company Number: PHHY2015VE107393

PATIENT
  Sex: Male

DRUGS (2)
  1. ACLASTA [Suspect]
     Active Substance: ZOLEDRONIC ACID
     Dosage: UNK
     Route: 065
     Dates: start: 2013, end: 2013
  2. ACLASTA [Suspect]
     Active Substance: ZOLEDRONIC ACID
     Indication: BONE DECALCIFICATION
     Dosage: 5 MG/100 ML, UNK
     Route: 065
     Dates: start: 20121020

REACTIONS (2)
  - Dysstasia [Unknown]
  - Prostate cancer [Fatal]
